FAERS Safety Report 5993033-5 (Version None)
Quarter: 2008Q4

REPORT INFORMATION
  Report Type: 
  Country: None (occurrence: None)
  Receive Date: 20081210
  Receipt Date: 20081210
  Transmission Date: 20090506
  Serious: Yes (Hospitalization)
  Sender: FDA-Public Use
  Company Number: None

PATIENT
  Sex: Female
  Weight: 40.2 kg

DRUGS (2)
  1. CISPLATIN [Suspect]
     Dosage: 50 MG
     Dates: end: 20081113
  2. GEMCITABINE HCL [Suspect]
     Dosage: 3000 MG
     Dates: end: 20081120

REACTIONS (9)
  - ASCITES [None]
  - COAGULOPATHY [None]
  - GENERALISED OEDEMA [None]
  - INTERNATIONAL NORMALISED RATIO INCREASED [None]
  - MENTAL STATUS CHANGES [None]
  - PLEURAL EFFUSION [None]
  - RENAL FAILURE ACUTE [None]
  - SEPSIS [None]
  - SMALL INTESTINAL OBSTRUCTION [None]
